FAERS Safety Report 24044546 (Version 2)
Quarter: 2024Q3

REPORT INFORMATION
  Report Type: Spontaneous
  Country: US (occurrence: US)
  Receive Date: 20240703
  Receipt Date: 20240805
  Transmission Date: 20241017
  Serious: No
  Sender: TEVA
  Company Number: US-TEVA-VS-3213613

PATIENT
  Age: 36 Year
  Sex: Female
  Weight: 60.33 kg

DRUGS (4)
  1. AJOVY [Suspect]
     Active Substance: FREMANEZUMAB-VFRM
     Indication: Migraine
     Dosage: 225/1.5 MG/ML, IN HER LEFT BUTT CHEEK
     Route: 058
     Dates: start: 20240614
  2. AJOVY [Suspect]
     Active Substance: FREMANEZUMAB-VFRM
  3. AJOVY [Suspect]
     Active Substance: FREMANEZUMAB-VFRM
  4. AJOVY [Suspect]
     Active Substance: FREMANEZUMAB-VFRM

REACTIONS (4)
  - Tinnitus [Unknown]
  - Somnolence [Unknown]
  - Feeling abnormal [Unknown]
  - Product administered at inappropriate site [Unknown]

NARRATIVE: CASE EVENT DATE: 20240614
